FAERS Safety Report 24834043 (Version 1)
Quarter: 2025Q1

REPORT INFORMATION
  Report Type: Spontaneous
  Country: TR (occurrence: TR)
  Receive Date: 20250112
  Receipt Date: 20250112
  Transmission Date: 20250409
  Serious: Yes (Hospitalization)
  Sender: STRIDES
  Company Number: TR-STRIDES ARCOLAB LIMITED-2025SP000360

PATIENT
  Age: 57 Year
  Sex: Male

DRUGS (2)
  1. DICLOFENAC [Suspect]
     Active Substance: DICLOFENAC
     Indication: Analgesic therapy
     Route: 065
  2. FLURBIPROFEN [Suspect]
     Active Substance: FLURBIPROFEN
     Indication: Analgesic therapy
     Route: 065

REACTIONS (2)
  - Small intestinal obstruction [Recovered/Resolved]
  - Protein-losing gastroenteropathy [Recovered/Resolved]
